FAERS Safety Report 21948239 (Version 4)
Quarter: 2025Q1

REPORT INFORMATION
  Report Type: Spontaneous
  Country: IE (occurrence: IE)
  Receive Date: 20230203
  Receipt Date: 20250206
  Transmission Date: 20250409
  Serious: Yes (Other)
  Sender: ADVANZ PHARMA
  Company Number: None

PATIENT

DRUGS (7)
  1. PREDNISOLONE [Suspect]
     Active Substance: PREDNISOLONE
     Indication: Thrombotic thrombocytopenic purpura
     Route: 048
     Dates: start: 20230101
  2. PIPERACILLIN SODIUM\TAZOBACTAM SODIUM [Suspect]
     Active Substance: PIPERACILLIN SODIUM\TAZOBACTAM SODIUM
     Route: 042
     Dates: start: 20230101
  3. OCTAPLAS LG [Suspect]
     Active Substance: PLASMA PROTEIN FRACTION (HUMAN)
     Indication: Thrombotic thrombocytopenic purpura
     Route: 042
     Dates: start: 20230103, end: 20230103
  4. OCTAPLAS LG [Suspect]
     Active Substance: PLASMA PROTEIN FRACTION (HUMAN)
     Indication: Plasmapheresis
  5. CABLIVI [Suspect]
     Active Substance: CAPLACIZUMAB-YHDP
     Indication: Thrombotic thrombocytopenic purpura
     Route: 058
     Dates: start: 20230101
  6. VANCOMYCIN [Suspect]
     Active Substance: VANCOMYCIN
     Route: 042
     Dates: start: 20230101
  7. CALCIUM GLUCONATE (G) [Concomitant]
     Dates: start: 20230101

REACTIONS (2)
  - Pyrexia [Recovered/Resolved]
  - Abdominal pain [Recovered/Resolved]

NARRATIVE: CASE EVENT DATE: 20230103
